FAERS Safety Report 11546079 (Version 3)
Quarter: 2015Q4

REPORT INFORMATION
  Report Type: Spontaneous
  Country: FR (occurrence: FR)
  Receive Date: 20150924
  Receipt Date: 20151012
  Transmission Date: 20160304
  Serious: Yes (Hospitalization)
  Sender: FDA-Public Use
  Company Number: FR-PFIZER INC-2015318210

PATIENT
  Age: 68 Year
  Sex: Male

DRUGS (4)
  1. LEVOLEUCOVORIN CALCIUM [Suspect]
     Active Substance: LEVOLEUCOVORIN CALCIUM
     Dosage: 360 MG, UNK
     Route: 042
     Dates: start: 20150824, end: 20150824
  2. ONDANSETRON [Suspect]
     Active Substance: ONDANSETRON
     Dosage: 8 MG, UNK
     Route: 048
     Dates: start: 20150824, end: 20150824
  3. OXALIPLATINE KABI [Suspect]
     Active Substance: OXALIPLATIN
     Dosage: 155 MG, DAILY
     Route: 042
     Dates: start: 20150824, end: 20150824
  4. SOLU-MEDROL [Suspect]
     Active Substance: METHYLPREDNISOLONE SODIUM SUCCINATE
     Dosage: 60 MG, UNK
     Route: 042
     Dates: start: 20150824, end: 20150824

REACTIONS (5)
  - Hypertension [Recovered/Resolved]
  - Back pain [Recovered/Resolved]
  - Chills [Recovered/Resolved]
  - Administration related reaction [Recovered/Resolved]
  - Chest pain [Recovered/Resolved]

NARRATIVE: CASE EVENT DATE: 20150824
